FAERS Safety Report 10181486 (Version 2)
Quarter: 2014Q2

REPORT INFORMATION
  Report Type: Spontaneous
  Country: US (occurrence: US)
  Receive Date: 20140519
  Receipt Date: 20140613
  Transmission Date: 20141212
  Serious: Yes (Hospitalization)
  Sender: FDA-Public Use
  Company Number: US-GLAXOSMITHKLINE-A1072794A

PATIENT
  Age: 69 Year
  Sex: Female

DRUGS (2)
  1. ADVAIR [Suspect]
     Indication: ASTHMA
     Route: 055
  2. PREDNISONE [Concomitant]

REACTIONS (12)
  - Dyspnoea [Unknown]
  - Influenza [Unknown]
  - Malaise [Unknown]
  - Pyrexia [Unknown]
  - Cough [Unknown]
  - Bronchitis [Unknown]
  - Dysphonia [Unknown]
  - Dysphonia [Unknown]
  - Dyspnoea [Unknown]
  - Drug administration error [Unknown]
  - Product quality issue [Unknown]
  - Drug ineffective [Unknown]
